FAERS Safety Report 4358967-6 (Version None)
Quarter: 2004Q2

REPORT INFORMATION
  Report Type: 
  Country: None (occurrence: None)
  Receive Date: 20040517
  Receipt Date: 20030917
  Transmission Date: 20050107
  Serious: Yes (Death, Life-Threatening)
  Sender: FDA-Public Use
  Company Number: DE-MERCK-0309DEU00119

PATIENT
  Age: 72 Year
  Sex: Male
  Weight: 80 kg

DRUGS (12)
  1. AMIODARONE HYDROCHLORIDE [Suspect]
     Indication: ARRHYTHMIA
     Route: 048
     Dates: start: 20030520, end: 20030521
  2. AMIODARONE HYDROCHLORIDE [Suspect]
     Indication: VENTRICULAR EXTRASYSTOLES
     Route: 048
     Dates: start: 20030520, end: 20030521
  3. FUROSEMIDE [Concomitant]
     Route: 065
  4. MAGNESIUM (UNSPECIFIED) [Concomitant]
     Route: 065
  5. PANTOPRAZOLE SODIUM [Concomitant]
     Route: 065
  6. PREDNISOLONE [Concomitant]
     Route: 065
  7. VIOXX [Suspect]
     Indication: RECTAL PROLAPSE
     Route: 048
     Dates: start: 20030517, end: 20030519
  8. VIOXX [Suspect]
     Route: 048
     Dates: start: 20030520, end: 20030521
  9. VIOXX [Suspect]
     Indication: HAEMORRHOIDS
     Route: 048
     Dates: start: 20030517, end: 20030519
  10. VIOXX [Suspect]
     Route: 048
     Dates: start: 20030520, end: 20030521
  11. SULTAMICILLIN TOSYLATE [Concomitant]
     Route: 065
  12. THEOPHYLLINE [Concomitant]
     Route: 065

REACTIONS (4)
  - DISSEMINATED INTRAVASCULAR COAGULATION [None]
  - HEPATITIS TOXIC [None]
  - RENAL FAILURE ACUTE [None]
  - RHABDOMYOLYSIS [None]
